FAERS Safety Report 22290232 (Version 3)
Quarter: 2023Q2

REPORT INFORMATION
  Report Type: Report from Study
  Country: CR (occurrence: None)
  Receive Date: 20230505
  Receipt Date: 20230518
  Transmission Date: 20230721
  Serious: No
  Sender: FDA-Public Use
  Company Number: CR-Eisai Medical Research-EC-2023-139685

PATIENT
  Age: 54 Year
  Sex: Male
  Weight: 73.9 kg

DRUGS (7)
  1. LENVATINIB [Suspect]
     Active Substance: LENVATINIB
     Indication: Adenocarcinoma gastric
     Dosage: STARTING DOSE 20 MG, FLUCTUATED DOSAGE
     Route: 048
     Dates: start: 20221011, end: 20230327
  2. LENVATINIB [Suspect]
     Active Substance: LENVATINIB
     Indication: Oesophageal adenocarcinoma
     Route: 048
     Dates: start: 20230328
  3. LENVATINIB [Suspect]
     Active Substance: LENVATINIB
     Indication: Human epidermal growth factor receptor negative
  4. PEMBROLIZUMAB [Suspect]
     Active Substance: PEMBROLIZUMAB
     Indication: Adenocarcinoma gastric
     Route: 041
     Dates: start: 20221011, end: 20230214
  5. PEMBROLIZUMAB [Suspect]
     Active Substance: PEMBROLIZUMAB
     Indication: Oesophageal adenocarcinoma
     Route: 041
     Dates: start: 20230328
  6. PEMBROLIZUMAB [Suspect]
     Active Substance: PEMBROLIZUMAB
     Indication: Human epidermal growth factor receptor negative
  7. LOPERAMIDE [Concomitant]
     Active Substance: LOPERAMIDE
     Dates: start: 20230103

REACTIONS (1)
  - Skin ulcer [Recovering/Resolving]

NARRATIVE: CASE EVENT DATE: 20230324
